FAERS Safety Report 6417776-4 (Version None)
Quarter: 2009Q4

REPORT INFORMATION
  Report Type: 
  Country: None (occurrence: None)
  Receive Date: 20091027
  Receipt Date: 20091027
  Transmission Date: 20100525
  Serious: Yes (Hospitalization)
  Sender: FDA-Public Use
  Company Number: None

PATIENT
  Age: 75 Year
  Sex: Female
  Weight: 77 kg

DRUGS (9)
  1. PLAVIX [Suspect]
     Indication: CORONARY ARTERIAL STENT INSERTION
     Dosage: 75 MG PO QD HOME
     Route: 048
  2. HYDROCHLOROTHIAZIDE [Concomitant]
  3. TOLTERODINE TARTRATE [Concomitant]
  4. LACTULOSE [Concomitant]
  5. METOPROLOL [Concomitant]
  6. LACTOBACILLUS [Concomitant]
  7. RANITIDINE [Concomitant]
  8. URSODIOL [Concomitant]
  9. SIMVASTATIN [Concomitant]

REACTIONS (1)
  - CEREBRAL HAEMORRHAGE [None]
